FAERS Safety Report 6890197-6 (Version None)
Quarter: 2010Q3

REPORT INFORMATION
  Report Type: 
  Country: None (occurrence: None)
  Receive Date: 20100730
  Receipt Date: 20080821
  Transmission Date: 20110219
  Serious: No
  Sender: FDA-Public Use
  Company Number: US-PFIZER INC-2008044130

PATIENT
  Sex: Female
  Weight: 70.31 kg

DRUGS (7)
  1. LIPITOR [Suspect]
     Indication: BLOOD CHOLESTEROL INCREASED
     Route: 048
     Dates: start: 20040101
  2. COUMADIN [Concomitant]
  3. NORVASC [Concomitant]
  4. PREMARIN [Concomitant]
  5. ACETYLSALICYLIC ACID SRT [Concomitant]
  6. CARDIOVASCULAR SYSTEM DRUGS [Concomitant]
  7. METOPROLOL TARTRATE [Concomitant]
     Indication: HYPERTENSION

REACTIONS (1)
  - WRONG TECHNIQUE IN DRUG USAGE PROCESS [None]
